FAERS Safety Report 12067442 (Version 1)
Quarter: 2016Q1

REPORT INFORMATION
  Report Type: Spontaneous
  Country: AR (occurrence: None)
  Receive Date: 20160210
  Receipt Date: 20160210
  Transmission Date: 20160526
  Serious: Yes (Disabling)
  Sender: FDA-Public Use
  Company Number: None

PATIENT
  Age: 23 Year
  Sex: Female
  Weight: 47 kg

DRUGS (1)
  1. OMEPRAZOLE 40 MG AZIATOP [Suspect]
     Active Substance: OMEPRAZOLE
     Dosage: 1 PILL, ONCE DAILY, TAKEN BY MOUTH

REACTIONS (1)
  - Headache [None]

NARRATIVE: CASE EVENT DATE: 20160208
